FAERS Safety Report 8026868-8 (Version None)
Quarter: 2012Q1

REPORT INFORMATION
  Report Type: 
  Country: None (occurrence: None)
  Receive Date: 20120106
  Receipt Date: 20120104
  Transmission Date: 20120608
  Serious: No
  Sender: FDA-Public Use
  Company Number: US-PFIZER INC-2012002969

PATIENT
  Sex: Male

DRUGS (1)
  1. LIPITOR [Suspect]
     Dosage: UNK

REACTIONS (5)
  - HEAD INJURY [None]
  - PYREXIA [None]
  - FATIGUE [None]
  - ARTHRALGIA [None]
  - MYALGIA [None]
